FAERS Safety Report 8985804 (Version 1)
Quarter: 2012Q4

REPORT INFORMATION
  Report Type: 
  Country: BR (occurrence: BR)
  Receive Date: 20121226
  Receipt Date: 20121226
  Transmission Date: 20130627
  Serious: Yes (Hospitalization)
  Sender: FDA-Public Use
  Company Number: PHHY2012BR119126

PATIENT
  Age: 2 Year
  Sex: Female

DRUGS (4)
  1. CEFEPIME [Suspect]
     Indication: PYREXIA
  2. MEROPENEM [Suspect]
     Indication: PYREXIA
  3. VANCOMYCIN [Suspect]
     Indication: PYREXIA
  4. AMPHOTERICIN B DEOXYCHOLATE [Concomitant]

REACTIONS (4)
  - Sepsis [Recovered/Resolved]
  - Pleural effusion [Recovered/Resolved]
  - Staphylococcal infection [Recovered/Resolved]
  - Candidiasis [Recovered/Resolved]
